FAERS Safety Report 8393674-4 (Version None)
Quarter: 2012Q2

REPORT INFORMATION
  Report Type: 
  Country: None (occurrence: None)
  Receive Date: 20120530
  Receipt Date: 20120522
  Transmission Date: 20120825
  Serious: No
  Sender: FDA-Public Use
  Company Number: US-BIOGENIDEC-2012BI014534

PATIENT
  Sex: Female

DRUGS (3)
  1. TYSABRI [Suspect]
     Indication: MULTIPLE SCLEROSIS
     Route: 042
     Dates: start: 20110810
  2. ZYRTEC [Concomitant]
     Indication: PREMEDICATION
  3. AVONEX [Concomitant]
     Indication: MULTIPLE SCLEROSIS
     Route: 030
     Dates: start: 20060908

REACTIONS (10)
  - TREMOR [None]
  - PALLOR [None]
  - BRONCHITIS [None]
  - FLUSHING [None]
  - CHEST DISCOMFORT [None]
  - HYPERSENSITIVITY [None]
  - HYPERHIDROSIS [None]
  - CHILLS [None]
  - HYPOTENSION [None]
  - FEELING COLD [None]
